FAERS Safety Report 8480907-9 (Version None)
Quarter: 2012Q3

REPORT INFORMATION
  Report Type: 
  Country: None (occurrence: None)
  Receive Date: 20120702
  Receipt Date: 20120620
  Transmission Date: 20120928
  Serious: Yes (Death)
  Sender: FDA-Public Use
  Company Number: US-CELGENEUS-163-21880-12063373

PATIENT
  Sex: Female
  Weight: 94.886 kg

DRUGS (14)
  1. OMEPRAZOLE [Concomitant]
     Dosage: 40 MILLIGRAM
     Route: 048
  2. AMLODIPINE BESYLATE [Concomitant]
     Dosage: 10 MILLIGRAM
     Route: 048
  3. LANTUS [Concomitant]
     Dosage: 60 UNITS
     Route: 058
  4. AMBIEN [Concomitant]
     Dosage: 10 MILLIGRAM
     Route: 048
  5. ASPIRIN [Concomitant]
     Dosage: 325 MILLIGRAM
     Route: 048
  6. DEXAMETHASONE [Concomitant]
     Dosage: 40 MILLIGRAM
     Route: 048
  7. NOVOLOG [Concomitant]
     Dosage: 4UNITS
     Route: 058
  8. CODEINE W/GUAIFENESIN [Concomitant]
     Dosage: 5 MILLILITER
     Route: 048
  9. ATENOLOL [Concomitant]
     Dosage: 50 MILLIGRAM
     Route: 048
  10. RISPERIDONE [Concomitant]
     Dosage: 1 MILLIGRAM
     Route: 048
  11. INDAPAMIDE [Concomitant]
     Dosage: 1.25 MILLIGRAM
     Route: 048
  12. REVLIMID [Suspect]
     Indication: MULTIPLE MYELOMA
     Dosage: 25 MILLIGRAM
     Route: 048
     Dates: start: 20110204
  13. GABAPENTIN [Concomitant]
     Dosage: 400 MILLIGRAM
     Route: 048
  14. PERCOCET [Concomitant]
     Indication: PAIN
     Dosage: 5MG-325MG
     Route: 048

REACTIONS (1)
  - MYOCARDIAL INFARCTION [None]
